FAERS Safety Report 6312212-0 (Version None)
Quarter: 2009Q3

REPORT INFORMATION
  Report Type: 
  Country: None (occurrence: None)
  Receive Date: 20090817
  Receipt Date: 20090805
  Transmission Date: 20100115
  Serious: Yes (Hospitalization)
  Sender: FDA-Public Use
  Company Number: CA-PFIZER INC-2009248326

PATIENT
  Age: 63 Year

DRUGS (15)
  1. NAPROXEN [Suspect]
     Indication: OSTEOARTHRITIS
     Dosage: UNK
     Route: 048
     Dates: start: 20090523
  2. BLINDED *NO SUBJECT DRUG [Suspect]
     Indication: OSTEOARTHRITIS
     Dosage: UNK
     Route: 048
     Dates: start: 20090523
  3. BLINDED *PLACEBO [Suspect]
     Indication: OSTEOARTHRITIS
     Dosage: UNK
     Route: 048
     Dates: start: 20090523
  4. BLINDED CELECOXIB [Suspect]
     Indication: OSTEOARTHRITIS
     Dosage: UNK
     Route: 048
     Dates: start: 20090523
  5. IBUPROFEN [Suspect]
     Indication: OSTEOARTHRITIS
     Dosage: UNK
     Route: 048
     Dates: start: 20090523
  6. NAPROXEN [Suspect]
     Dosage: UNK
     Route: 048
     Dates: start: 20090523
  7. NEXIUM [Concomitant]
     Indication: GASTRITIS PROPHYLAXIS
     Dosage: 20 MG, 1X/DAY
     Route: 048
     Dates: start: 20090523
  8. VENTOLIN [Concomitant]
     Dosage: UNK
     Dates: start: 20000101
  9. OXAZEPAM [Concomitant]
     Dosage: UNK
     Route: 048
     Dates: start: 20020129
  10. SIMVASTATIN [Concomitant]
     Dosage: UNK
     Route: 048
     Dates: start: 20021203
  11. PAROXETINE [Concomitant]
     Dosage: UNK
     Route: 048
     Dates: start: 20011113
  12. NOVO-GESIC [Concomitant]
     Dosage: UNK
     Route: 048
     Dates: start: 20010129
  13. LACTULOSE [Concomitant]
     Dosage: UNK
     Route: 048
     Dates: start: 20080630
  14. MOTILIUM [Concomitant]
     Dosage: UNK
     Route: 048
     Dates: start: 20090204
  15. PANTOLOC ^BYK MADAUS^ [Concomitant]
     Dosage: UNK
     Route: 048
     Dates: start: 20090311

REACTIONS (1)
  - OESOPHAGEAL SPASM [None]
